FAERS Safety Report 7527846-5 (Version None)
Quarter: 2011Q2

REPORT INFORMATION
  Report Type: 
  Country: None (occurrence: None)
  Receive Date: 20110513
  Receipt Date: 20100713
  Transmission Date: 20111010
  Serious: Yes (Hospitalization)
  Sender: FDA-Public Use
  Company Number: 2010PL000078

PATIENT
  Age: 20 Year
  Sex: Male

DRUGS (4)
  1. IMURAN [Suspect]
     Indication: COLITIS ULCERATIVE
  2. PREDNISONE [Concomitant]
  3. REMICADE [Suspect]
     Indication: COLITIS ULCERATIVE
     Dosage: 5 MG/KG; Q8WK;IV
     Route: 042
  4. SULFASALAZINE [Concomitant]

REACTIONS (1)
  - PANCREATITIS [None]
